FAERS Safety Report 7986488-8 (Version None)
Quarter: 2011Q4

REPORT INFORMATION
  Report Type: 
  Country: None (occurrence: None)
  Receive Date: 20111216
  Receipt Date: 20110131
  Transmission Date: 20120403
  Serious: No
  Sender: FDA-Public Use
  Company Number: US-BRISTOL-MYERS SQUIBB COMPANY-15520356

PATIENT
  Age: 54 Year
  Sex: Female

DRUGS (6)
  1. ABILIFY [Suspect]
     Indication: RESTLESS LEGS SYNDROME
     Dosage: STARTED ON 2MG OF ABILIFY AND WAS TITRATED UP TO 5 MG AND THEN 10MG ON 26MAY10
     Dates: start: 20100101
  2. MIRAPEX [Concomitant]
  3. ROZEREM [Concomitant]
  4. GABAPENTIN [Concomitant]
  5. ABILIFY [Suspect]
     Indication: MAJOR DEPRESSION
     Dosage: STARTED ON 2MG OF ABILIFY AND WAS TITRATED UP TO 5 MG AND THEN 10MG ON 26MAY10
     Dates: start: 20100101
  6. PRISTIQ [Concomitant]

REACTIONS (1)
  - TARDIVE DYSKINESIA [None]
